FAERS Safety Report 6925493-7 (Version None)
Quarter: 2010Q3

REPORT INFORMATION
  Report Type: 
  Country: None (occurrence: None)
  Receive Date: 20100816
  Receipt Date: 20100806
  Transmission Date: 20110219
  Serious: Yes (Hospitalization)
  Sender: FDA-Public Use
  Company Number: CA-JNJFOC-20100502292

PATIENT
  Age: 2 Year
  Sex: Male

DRUGS (2)
  1. CHILDREN'S MOTRIN [Suspect]
  2. CHILDREN'S MOTRIN [Suspect]
     Indication: PYREXIA

REACTIONS (4)
  - BLOOD URINE PRESENT [None]
  - CHILLS [None]
  - PERIPHERAL COLDNESS [None]
  - PRODUCT QUALITY ISSUE [None]
